FAERS Safety Report 4988285-4 (Version None)
Quarter: 2006Q2

REPORT INFORMATION
  Report Type: 
  Country: None (occurrence: None)
  Receive Date: 20060425
  Receipt Date: 20060412
  Transmission Date: 20061013
  Serious: Yes (Life-Threatening, Hospitalization, Disabling, Other)
  Sender: FDA-Public Use
  Company Number: 2006037520

PATIENT
  Age: 50 Year
  Sex: Female
  Weight: 118 kg

DRUGS (1)
  1. ZOLOFT [Suspect]
     Indication: DEPRESSION
     Dosage: 100 MG (100 MG, 1 IN 1 D), ORAL
     Route: 048
     Dates: start: 20060130, end: 20060201

REACTIONS (7)
  - ACTIVITIES OF DAILY LIVING IMPAIRED [None]
  - CEREBRAL ISCHAEMIA [None]
  - COMPRESSION FRACTURE [None]
  - CONVULSION [None]
  - GRAND MAL CONVULSION [None]
  - LUMBAR VERTEBRAL FRACTURE [None]
  - POSTICTAL STATE [None]
